FAERS Safety Report 16844594 (Version 1)
Quarter: 2019Q4

REPORT INFORMATION
  Report Type: Spontaneous
  Country: US (occurrence: US)
  Receive Date: 20190923
  Receipt Date: 20190923
  Transmission Date: 20200122
  Serious: Yes (Other)
  Sender: FDA-Public Use
  Company Number: None

PATIENT
  Age: 15 Year
  Sex: Male
  Weight: 72 kg

DRUGS (1)
  1. METHYLPHENIDATE HYDROCHLORIDE. [Suspect]
     Active Substance: METHYLPHENIDATE HYDROCHLORIDE
     Indication: ATTENTION DEFICIT/HYPERACTIVITY DISORDER
     Dosage: ?          QUANTITY:2 TABLET(S);?
     Route: 048

REACTIONS (13)
  - Impulse-control disorder [None]
  - Crying [None]
  - Product substitution issue [None]
  - Psychomotor hyperactivity [None]
  - Disturbance in attention [None]
  - Product complaint [None]
  - Anger [None]
  - Drug ineffective [None]
  - Therapeutic response changed [None]
  - Product quality issue [None]
  - Depressed mood [None]
  - Feeling jittery [None]
  - Restless legs syndrome [None]
